FAERS Safety Report 5668125-0 (Version None)
Quarter: 2008Q1

REPORT INFORMATION
  Report Type: 
  Country: None (occurrence: None)
  Receive Date: 20080315
  Receipt Date: 20080229
  Transmission Date: 20080703
  Serious: No
  Sender: FDA-Public Use
  Company Number: US-ABBOTT-08P-163-0438571-00

PATIENT
  Sex: Male
  Weight: 86.26 kg

DRUGS (8)
  1. HUMIRA [Suspect]
     Indication: CROHN'S DISEASE
     Route: 058
     Dates: start: 20080211, end: 20080211
  2. HUMIRA [Suspect]
     Route: 058
     Dates: start: 20080226, end: 20080226
  3. HUMIRA [Suspect]
     Route: 058
  4. PREDNISONE [Concomitant]
     Indication: CROHN'S DISEASE
     Route: 048
  5. LISINOPRIL [Concomitant]
     Indication: HYPERTENSION
     Route: 048
  6. DULOXETINE HYDROCHLORIDE [Concomitant]
     Indication: DEPRESSION
     Route: 048
  7. LOPERAMIDE HCL [Concomitant]
     Indication: PAIN MANAGEMENT
     Route: 048
  8. RABEPRAZOLE SODIUM [Concomitant]
     Indication: CROHN'S DISEASE
     Route: 048

REACTIONS (8)
  - ABDOMINAL PAIN [None]
  - ANGER [None]
  - ANXIETY [None]
  - DEPRESSION [None]
  - FEELING JITTERY [None]
  - HYPERHIDROSIS [None]
  - INSOMNIA [None]
  - TREMOR [None]
